FAERS Safety Report 20579590 (Version 1)
Quarter: 2022Q1

REPORT INFORMATION
  Report Type: Spontaneous
  Country: US (occurrence: US)
  Receive Date: 20220310
  Receipt Date: 20220310
  Transmission Date: 20220423
  Serious: No
  Sender: FDA-Public Use
  Company Number: US-009507513-2202USA008418

PATIENT
  Sex: Female

DRUGS (2)
  1. KEYTRUDA [Suspect]
     Active Substance: PEMBROLIZUMAB
     Dosage: UNK
     Dates: start: 20220209
  2. LENVATINIB MESYLATE [Suspect]
     Active Substance: LENVATINIB MESYLATE
     Indication: Endometrial cancer
     Dosage: 8 MILLIGRAM
     Route: 048
     Dates: start: 20220216

REACTIONS (3)
  - Fatigue [Recovering/Resolving]
  - Balance disorder [Recovering/Resolving]
  - Dysphonia [Unknown]

NARRATIVE: CASE EVENT DATE: 20220101
